FAERS Safety Report 7207466-2 (Version None)
Quarter: 2011Q1

REPORT INFORMATION
  Report Type: 
  Country: None (occurrence: None)
  Receive Date: 20110103
  Receipt Date: 20101221
  Transmission Date: 20110831
  Serious: Yes (Other)
  Sender: FDA-Public Use
  Company Number: US-SANOFI-AVENTIS-2010SA077241

PATIENT
  Age: 80 Year
  Sex: Male

DRUGS (2)
  1. AMBIEN [Suspect]
     Indication: SLEEP DISORDER
     Route: 048
  2. ZOLPIDEM TARTRATE [Suspect]
     Indication: SLEEP DISORDER
     Route: 048

REACTIONS (2)
  - PANIC ATTACK [None]
  - MEMORY IMPAIRMENT [None]
